FAERS Safety Report 21333902 (Version 1)
Quarter: 2022Q3

REPORT INFORMATION
  Report Type: Spontaneous
  Country: DE (occurrence: DE)
  Receive Date: 20220914
  Receipt Date: 20220914
  Transmission Date: 20221027
  Serious: Yes (Congenital Anomaly)
  Sender: FDA-Public Use
  Company Number: DE-NOVARTISPH-NVSC2022DE203099

PATIENT

DRUGS (3)
  1. AGOMELATINE [Suspect]
     Active Substance: AGOMELATINE
     Indication: Foetal exposure during pregnancy
     Dosage: 25 MG, QD
     Route: 064
  2. VENLAFAXINE [Suspect]
     Active Substance: VENLAFAXINE HYDROCHLORIDE
     Indication: Foetal exposure during pregnancy
     Dosage: 300 MG, QD
     Route: 064
  3. DOXEPIN [Suspect]
     Active Substance: DOXEPIN
     Indication: Foetal exposure during pregnancy
     Dosage: 100 MG, QD
     Route: 064

REACTIONS (2)
  - Hydronephrosis [Unknown]
  - Foetal exposure during pregnancy [Unknown]
